FAERS Safety Report 19959493 (Version 2)
Quarter: 2021Q4

REPORT INFORMATION
  Report Type: Spontaneous
  Country: GB (occurrence: GB)
  Receive Date: 20211015
  Receipt Date: 20211226
  Transmission Date: 20220303
  Serious: Yes (Life-Threatening, Hospitalization)
  Sender: FDA-Public Use
  Company Number: GB-PFIZER INC-2021398283

PATIENT
  Age: 63 Year
  Sex: Female

DRUGS (4)
  1. ALLOPURINOL [Suspect]
     Active Substance: ALLOPURINOL
     Route: 065
  2. CYTARABINE [Suspect]
     Active Substance: CYTARABINE
     Dosage: UNK
     Route: 065
     Dates: start: 20210226, end: 20210307
  3. DAUNORUBICIN [Suspect]
     Active Substance: DAUNORUBICIN
     Dosage: UNK
     Route: 065
     Dates: start: 20210226, end: 20210302
  4. MYLOTARG [Suspect]
     Active Substance: GEMTUZUMAB OZOGAMICIN
     Indication: Acute myeloid leukaemia
     Dosage: STRENGTH: 3 MG/M2
     Route: 042
     Dates: start: 20210226, end: 20210226

REACTIONS (2)
  - Sepsis [Recovered/Resolved]
  - Rash [Recovered/Resolved]

NARRATIVE: CASE EVENT DATE: 20210406
